FAERS Safety Report 8156395-9 (Version None)
Quarter: 2012Q1

REPORT INFORMATION
  Report Type: 
  Country: None (occurrence: None)
  Receive Date: 20120222
  Receipt Date: 20120210
  Transmission Date: 20120608
  Serious: Yes (Hospitalization, Other)
  Sender: FDA-Public Use
  Company Number: KR-CTI_01446_2012

PATIENT
  Age: 47 Year
  Sex: Female

DRUGS (1)
  1. CEFDITOREN PIVOXIL [Suspect]
     Indication: POST PROCEDURAL INFECTION
     Dosage: DF
     Route: 048

REACTIONS (22)
  - ENCEPHALOPATHY [None]
  - CARNITINE DECREASED [None]
  - METABOLIC ACIDOSIS [None]
  - AGNOSIA [None]
  - GRAND MAL CONVULSION [None]
  - RED BLOOD CELLS CSF POSITIVE [None]
  - MENTAL STATUS CHANGES [None]
  - VISUAL IMPAIRMENT [None]
  - SOMNOLENCE [None]
  - NUCLEAR MAGNETIC RESONANCE IMAGING BRAIN ABNORMAL [None]
  - BRAIN OEDEMA [None]
  - VISION BLURRED [None]
  - CYTOTOXIC OEDEMA [None]
  - SENSORY LOSS [None]
  - ELECTROENCEPHALOGRAM ABNORMAL [None]
  - HAEMORRHAGE INTRACRANIAL [None]
  - HEMISENSORY NEGLECT [None]
  - HEADACHE [None]
  - CSF PRESSURE INCREASED [None]
  - CARNITINE DEFICIENCY [None]
  - CENTRAL NERVOUS SYSTEM LESION [None]
  - ALTERED STATE OF CONSCIOUSNESS [None]
